FAERS Safety Report 26092635 (Version 1)
Quarter: 2025Q4

REPORT INFORMATION
  Report Type: Spontaneous
  Country: CN (occurrence: CN)
  Receive Date: 20251126
  Receipt Date: 20251126
  Transmission Date: 20260117
  Serious: Yes (Other)
  Sender: ALKEM
  Company Number: CN-ALKEM LABORATORIES LIMITED-CN-ALKEM-2025-04210

PATIENT
  Age: 56 Year
  Sex: Female

DRUGS (54)
  1. BORTEZOMIB [Suspect]
     Active Substance: BORTEZOMIB
     Indication: Plasma cell myeloma
     Dosage: UNK (FOUR CYCLES)
     Route: 065
  2. BORTEZOMIB [Suspect]
     Active Substance: BORTEZOMIB
     Indication: Mass
  3. BORTEZOMIB [Suspect]
     Active Substance: BORTEZOMIB
     Indication: Plasma cell myeloma refractory
  4. LENALIDOMIDE [Suspect]
     Active Substance: LENALIDOMIDE
     Indication: Plasma cell myeloma
     Dosage: UNK
     Route: 065
  5. LENALIDOMIDE [Suspect]
     Active Substance: LENALIDOMIDE
     Indication: Malignant pleural effusion
     Dosage: UNK (ANOTHER COURSE)
     Route: 065
  6. LENALIDOMIDE [Suspect]
     Active Substance: LENALIDOMIDE
     Indication: Mediastinum neoplasm
     Dosage: 25 MILLIGRAM (MAINTENANCE THERAPY) (FROM DAY 1 TO DAY 14 EVERY THREE MONTHS)
     Route: 065
  7. LENALIDOMIDE [Suspect]
     Active Substance: LENALIDOMIDE
     Indication: Lymphadenopathy
  8. LENALIDOMIDE [Suspect]
     Active Substance: LENALIDOMIDE
     Indication: Breast cancer
  9. LENALIDOMIDE [Suspect]
     Active Substance: LENALIDOMIDE
     Indication: Plasma cell myeloma refractory
  10. MYCOPHENOLATE MOFETIL [Suspect]
     Active Substance: MYCOPHENOLATE MOFETIL
     Indication: Prophylaxis against graft versus host disease
     Dosage: UNK
     Route: 065
  11. THYMOCYTE IMMUNE GLOBULIN NOS [Suspect]
     Active Substance: THYMOCYTE IMMUNE GLOBULIN NOS
     Indication: Bone marrow conditioning regimen
     Dosage: 10 MILLIGRAM/KILOGRAM (ON DAYS MINUS 5 TO MINUS 2)
     Route: 065
  12. THYMOCYTE IMMUNE GLOBULIN NOS [Suspect]
     Active Substance: THYMOCYTE IMMUNE GLOBULIN NOS
     Indication: Prophylaxis against graft versus host disease
  13. CYCLOPHOSPHAMIDE [Suspect]
     Active Substance: CYCLOPHOSPHAMIDE
     Indication: Malignant pleural effusion
     Dosage: UNK
     Route: 065
  14. CYCLOPHOSPHAMIDE [Suspect]
     Active Substance: CYCLOPHOSPHAMIDE
     Indication: Plasma cell myeloma
     Dosage: UNK (ANOTHER COURSE)
     Route: 065
  15. CYCLOPHOSPHAMIDE [Suspect]
     Active Substance: CYCLOPHOSPHAMIDE
     Indication: Lymphadenopathy
     Dosage: 90 MILLIGRAM/KILOGRAM (ON DAYS MINUS 5 TO MINUS 2)
     Route: 065
  16. CYCLOPHOSPHAMIDE [Suspect]
     Active Substance: CYCLOPHOSPHAMIDE
     Indication: Mediastinum neoplasm
  17. CYCLOPHOSPHAMIDE [Suspect]
     Active Substance: CYCLOPHOSPHAMIDE
     Indication: Breast cancer
  18. CYCLOPHOSPHAMIDE [Suspect]
     Active Substance: CYCLOPHOSPHAMIDE
     Indication: Bone marrow conditioning regimen
  19. CYCLOSPORINE [Suspect]
     Active Substance: CYCLOSPORINE
     Indication: Prophylaxis against graft versus host disease
     Dosage: UNK
     Route: 065
  20. DARATUMUMAB [Suspect]
     Active Substance: DARATUMUMAB
     Indication: Malignant pleural effusion
     Dosage: UNK
     Route: 065
  21. DARATUMUMAB [Suspect]
     Active Substance: DARATUMUMAB
     Indication: Plasma cell myeloma
     Dosage: UNK (ANOTHER COURSE)
     Route: 065
  22. DARATUMUMAB [Suspect]
     Active Substance: DARATUMUMAB
     Indication: Mediastinum neoplasm
  23. DARATUMUMAB [Suspect]
     Active Substance: DARATUMUMAB
     Indication: Lymphadenopathy
  24. DARATUMUMAB [Suspect]
     Active Substance: DARATUMUMAB
     Indication: Breast cancer
  25. DARATUMUMAB [Suspect]
     Active Substance: DARATUMUMAB
     Indication: Plasma cell myeloma refractory
  26. DEXAMETHASONE [Suspect]
     Active Substance: DEXAMETHASONE
     Indication: Plasma cell myeloma
     Dosage: UNK
     Route: 065
  27. DEXAMETHASONE [Suspect]
     Active Substance: DEXAMETHASONE
     Indication: Mass
     Dosage: UNK (ANOTHER COURSE)
     Route: 065
  28. DEXAMETHASONE [Suspect]
     Active Substance: DEXAMETHASONE
     Indication: Lymphadenopathy
  29. DEXAMETHASONE [Suspect]
     Active Substance: DEXAMETHASONE
     Indication: Malignant pleural effusion
  30. DEXAMETHASONE [Suspect]
     Active Substance: DEXAMETHASONE
     Indication: Mediastinum neoplasm
  31. DEXAMETHASONE [Suspect]
     Active Substance: DEXAMETHASONE
     Indication: Breast cancer
  32. METHOTREXATE [Suspect]
     Active Substance: METHOTREXATE
     Indication: Prophylaxis against graft versus host disease
     Dosage: UNK (SHORT-TERM)
     Route: 065
  33. CISPLATIN [Concomitant]
     Active Substance: CISPLATIN
     Indication: Mediastinum neoplasm
     Dosage: UNK
     Route: 065
  34. CISPLATIN [Concomitant]
     Active Substance: CISPLATIN
     Indication: Plasma cell myeloma
     Dosage: UNK (ANOTHER COURSE)
     Route: 065
  35. CISPLATIN [Concomitant]
     Active Substance: CISPLATIN
     Indication: Malignant pleural effusion
  36. CISPLATIN [Concomitant]
     Active Substance: CISPLATIN
     Indication: Lymphadenopathy
  37. CISPLATIN [Concomitant]
     Active Substance: CISPLATIN
     Indication: Breast cancer
  38. DEFIBROTIDE [Concomitant]
     Active Substance: DEFIBROTIDE (BOVINE)
     Indication: Prophylaxis
     Dosage: UNK
     Route: 065
  39. DOXORUBICIN [Concomitant]
     Active Substance: DOXORUBICIN
     Indication: Lymphadenopathy
     Dosage: UNK
     Route: 065
  40. DOXORUBICIN [Concomitant]
     Active Substance: DOXORUBICIN
     Indication: Plasma cell myeloma
     Dosage: UNK (ANOTHER COURSE)
     Route: 065
  41. DOXORUBICIN [Concomitant]
     Active Substance: DOXORUBICIN
     Indication: Mediastinum neoplasm
  42. DOXORUBICIN [Concomitant]
     Active Substance: DOXORUBICIN
     Indication: Malignant pleural effusion
  43. DOXORUBICIN [Concomitant]
     Active Substance: DOXORUBICIN
     Indication: Breast cancer
  44. ETOPOSIDE [Concomitant]
     Active Substance: ETOPOSIDE
     Indication: Lymphadenopathy
     Dosage: UNK
     Route: 065
  45. ETOPOSIDE [Concomitant]
     Active Substance: ETOPOSIDE
     Indication: Plasma cell myeloma
     Dosage: UNK (ANOTHER COURSE)
     Route: 065
  46. ETOPOSIDE [Concomitant]
     Active Substance: ETOPOSIDE
     Indication: Mediastinum neoplasm
     Dosage: 20 MILLIGRAM/KILOGRAM (ON DAYS MINUS 5 TO MINUS 2)
     Route: 065
  47. ETOPOSIDE [Concomitant]
     Active Substance: ETOPOSIDE
     Indication: Malignant pleural effusion
  48. ETOPOSIDE [Concomitant]
     Active Substance: ETOPOSIDE
     Indication: Breast cancer
  49. ETOPOSIDE [Concomitant]
     Active Substance: ETOPOSIDE
     Indication: Bone marrow conditioning regimen
  50. GANCICLOVIR [Concomitant]
     Active Substance: GANCICLOVIR
     Indication: Antiviral prophylaxis
     Dosage: UNK
     Route: 065
  51. POMALIDOMIDE [Concomitant]
     Active Substance: POMALIDOMIDE
     Indication: Mass
     Dosage: UNK
     Route: 065
  52. POMALIDOMIDE [Concomitant]
     Active Substance: POMALIDOMIDE
     Indication: Plasma cell myeloma refractory
  53. SELINEXOR [Concomitant]
     Active Substance: SELINEXOR
     Indication: Bone marrow conditioning regimen
     Dosage: 60 MILLIGRAM (ON DAYS MINUS 10 AND MINUS 7)
     Route: 065
  54. SELINEXOR [Concomitant]
     Active Substance: SELINEXOR
     Dosage: 40 MILLIGRAM, ONCE IN 2 WEEKS (TWICE A WEEK)
     Route: 065

REACTIONS (3)
  - Chronic graft versus host disease [Unknown]
  - Therapy partial responder [Unknown]
  - Therapy non-responder [Unknown]
